FAERS Safety Report 5233930-1 (Version None)
Quarter: 2007Q1

REPORT INFORMATION
  Report Type: 
  Country: None (occurrence: None)
  Receive Date: 20070208
  Receipt Date: 20070202
  Transmission Date: 20070707
  Serious: Yes (Hospitalization, Other)
  Sender: FDA-Public Use
  Company Number: GB-BRISTOL-MYERS SQUIBB COMPANY-13667001

PATIENT
  Age: 21 Year
  Sex: Male

DRUGS (5)
  1. ABILIFY [Suspect]
     Dosage: INCRS TO 15MG 11DEC2006 TO 13DEC2006 REDUCED TO 5MG 13DEC06-20DEC06 AND 21DEC06-01JAN07
     Route: 048
     Dates: start: 20061201, end: 20070101
  2. PRIADEL [Interacting]
     Route: 048
     Dates: start: 20061122, end: 20070107
  3. ZYPREXA [Interacting]
     Route: 048
     Dates: end: 20061224
  4. DIAZEPAM [Concomitant]
     Dosage: INCR TO  40MG
     Route: 048
     Dates: start: 20061122
  5. VALPROATE SODIUM [Concomitant]
     Route: 048
     Dates: start: 20060813

REACTIONS (2)
  - DRUG INTERACTION [None]
  - NEUROLEPTIC MALIGNANT SYNDROME [None]
